FAERS Safety Report 6520724-X (Version None)
Quarter: 2009Q4

REPORT INFORMATION
  Report Type: 
  Country: None (occurrence: None)
  Receive Date: 20091229
  Receipt Date: 20091222
  Transmission Date: 20100525
  Serious: Yes (Hospitalization, Other)
  Sender: FDA-Public Use
  Company Number: US-BIOGENIDEC-2009BI034909

PATIENT
  Age: 58 Year
  Sex: Female

DRUGS (9)
  1. TYSABRI [Suspect]
     Indication: MULTIPLE SCLEROSIS
     Route: 042
     Dates: start: 20070517, end: 20091021
  2. AMBIEN CR [Concomitant]
  3. LYBREL [Concomitant]
  4. INDOMETHACIN [Concomitant]
  5. NORTRIPTYLINE [Concomitant]
  6. LYRICA [Concomitant]
  7. LIPITOR [Concomitant]
  8. VERAPAMIL [Concomitant]
  9. DIOVAN [Concomitant]

REACTIONS (1)
  - COLD TYPE HAEMOLYTIC ANAEMIA [None]
